FAERS Safety Report 17151428 (Version 1)
Quarter: 2019Q4

REPORT INFORMATION
  Report Type: Spontaneous
  Country: DE (occurrence: DE)
  Receive Date: 20191213
  Receipt Date: 20191213
  Transmission Date: 20200122
  Serious: Yes (Hospitalization)
  Sender: FDA-Public Use
  Company Number: DE-PFIZER INC-2019539813

PATIENT
  Age: 61 Year
  Sex: Female

DRUGS (13)
  1. ORFIRIL [Suspect]
     Active Substance: VALPROATE SODIUM
     Dosage: 2000 MILLIGRAM, QD
     Route: 065
     Dates: start: 20160301
  2. FLUPHENAZINE [Suspect]
     Active Substance: FLUPHENAZINE
     Dosage: 50 MILLIGRAM, Q2WEEKS
     Route: 030
     Dates: start: 20160301
  3. QUETIAPIN [Suspect]
     Active Substance: QUETIAPINE
     Dosage: 400 MILLIGRAM, QD
     Route: 065
     Dates: start: 20190511, end: 20190515
  4. VITAMIN B12 [Concomitant]
     Active Substance: CYANOCOBALAMIN
     Dosage: UNK UNK, Q4WEEKS
     Route: 030
     Dates: start: 20160301
  5. VIANI [Concomitant]
     Active Substance: FLUTICASONE PROPIONATE\SALMETEROL XINAFOATE
     Dosage: UNK
     Dates: start: 20160301
  6. METFORMIN [Concomitant]
     Active Substance: METFORMIN HYDROCHLORIDE
     Dosage: 425 MILLIGRAM, QD
     Dates: start: 20160301
  7. PANTOZOL [Suspect]
     Active Substance: PANTOPRAZOLE SODIUM
     Dosage: 40 MILLIGRAM, QD
     Route: 065
     Dates: start: 20160301
  8. DEKRISTOL [Concomitant]
     Active Substance: CHOLECALCIFEROL
     Dosage: 20000 INTERNATIONAL UNIT, Q2WEEKS
     Dates: start: 20160301
  9. QUETIAPIN [Suspect]
     Active Substance: QUETIAPINE
     Dosage: 300 MILLIGRAM, QD
     Route: 065
     Dates: start: 20190516, end: 20190523
  10. SIMVASTATIN. [Concomitant]
     Active Substance: SIMVASTATIN
     Dosage: 20 MILLIGRAM, QD
     Dates: start: 20160301
  11. L-THYROXIN [LEVOTHYROXINE SODIUM] [Concomitant]
     Active Substance: LEVOTHYROXINE SODIUM
     Dosage: 75 MICROGRAM, QD
     Dates: start: 20160301
  12. QUETIAPIN [Suspect]
     Active Substance: QUETIAPINE
     Dosage: 300 MILLIGRAM, QD
     Route: 065
     Dates: start: 20190502, end: 20190510
  13. QUETIAPIN [Suspect]
     Active Substance: QUETIAPINE
     Dosage: 200 MILLIGRAM, QD
     Route: 065
     Dates: start: 20190524, end: 20190607

REACTIONS (4)
  - Nausea [Recovered/Resolved]
  - Dizziness [Recovered/Resolved]
  - Abdominal pain upper [Recovered/Resolved]
  - Hyponatraemia [Recovered/Resolved]

NARRATIVE: CASE EVENT DATE: 20190509
